FAERS Safety Report 19105389 (Version 1)
Quarter: 2021Q2

REPORT INFORMATION
  Report Type: Spontaneous
  Country: GB (occurrence: GB)
  Receive Date: 20210407
  Receipt Date: 20210407
  Transmission Date: 20210717
  Serious: Yes (Other)
  Sender: FDA-Public Use
  Company Number: GB-ASTRAZENECA-2021A259159

PATIENT
  Age: 63 Year
  Sex: Female
  Weight: 58 kg

DRUGS (5)
  1. OMEPRAZOLE. [Suspect]
     Active Substance: OMEPRAZOLE
     Indication: REFLUX LARYNGITIS
     Dosage: UNKNOWN REDUCED DOSE
     Route: 048
  2. OMEPRAZOLE. [Suspect]
     Active Substance: OMEPRAZOLE
     Indication: REFLUX LARYNGITIS
     Dosage: 20 UNK TWO TIMES A DAY
     Route: 048
  3. FLUTICASONE PROPIONATE MICRONISED [Suspect]
     Active Substance: FLUTICASONE PROPIONATE
     Indication: NASAL INFLAMMATION
     Dosage: 8 UNK TWO TIMES A DAY
     Route: 045
  4. AMOXICILLIN. [Concomitant]
     Active Substance: AMOXICILLIN
  5. NASAL SPRAY [Concomitant]
     Active Substance: UNSPECIFIED INGREDIENT
     Dosage: SEVERAL
     Route: 045

REACTIONS (5)
  - Nystagmus [Recovered/Resolved]
  - Heart rate increased [Recovered/Resolved]
  - Headache [Recovered/Resolved]
  - Nausea [Recovered/Resolved]
  - Feeling abnormal [Recovered/Resolved]
